FAERS Safety Report 10752062 (Version 2)
Quarter: 2015Q2

REPORT INFORMATION
  Report Type: Report from Study
  Country: DE (occurrence: DE)
  Receive Date: 20150130
  Receipt Date: 20150417
  Transmission Date: 20150821
  Serious: Yes (Death, Other)
  Sender: FDA-Public Use
  Company Number: DE-BRISTOL-MYERS SQUIBB COMPANY-19238732

PATIENT
  Age: 87 Year
  Sex: Male

DRUGS (5)
  1. TORASEMID DURA [Concomitant]
     Indication: CARDIAC FAILURE
     Route: 065
  2. ACETYLSALICYLATE SODIUM [Concomitant]
     Active Substance: ASPIRIN SODIUM
     Indication: ARTERIOSCLEROSIS
     Dosage: UNK
     Route: 048
     Dates: end: 20121207
  3. SIMVASTATIN. [Concomitant]
     Active Substance: SIMVASTATIN
     Indication: HYPERCHOLESTEROLAEMIA
     Dosage: 40 MG, UNK
     Route: 048
     Dates: end: 20121204
  4. CETUXIMAB [Suspect]
     Active Substance: CETUXIMAB
     Indication: SQUAMOUS CELL CARCINOMA OF HEAD AND NECK
     Dosage: LOADING DOSE : 400MG/M2  RECENT INF:15NOV12:250MG/M2
     Route: 042
     Dates: start: 20121024, end: 20121205
  5. TAMSULOSIN [Concomitant]
     Active Substance: TAMSULOSIN
     Indication: BENIGN PROSTATIC HYPERPLASIA
     Dosage: 0.4 MG, UNK
     Route: 065
     Dates: end: 20130121

REACTIONS (2)
  - Sepsis [Fatal]
  - Mucosal inflammation [Recovered/Resolved]

NARRATIVE: CASE EVENT DATE: 20121120
